FAERS Safety Report 24638454 (Version 1)
Quarter: 2024Q4

REPORT INFORMATION
  Report Type: Spontaneous
  Country: US (occurrence: None)
  Receive Date: 20241119
  Receipt Date: 20241119
  Transmission Date: 20250115
  Serious: Yes (Hospitalization)
  Sender: Public
  Company Number: None

PATIENT
  Age: 82 Year
  Sex: Male

DRUGS (1)
  1. MEGESTROL ACETATE [Suspect]
     Active Substance: MEGESTROL ACETATE
     Indication: Decreased appetite
     Dosage: FREQUENCY : 4 TIMES A DAY;?

REACTIONS (2)
  - Pulmonary embolism [None]
  - Cardiac failure congestive [None]

NARRATIVE: CASE EVENT DATE: 20240825
